FAERS Safety Report 18452370 (Version 1)
Quarter: 2020Q4

REPORT INFORMATION
  Report Type: Spontaneous
  Country: US (occurrence: US)
  Receive Date: 20201102
  Receipt Date: 20201102
  Transmission Date: 20210114
  Serious: Yes (Other)
  Sender: FDA-Public Use
  Company Number: US-BAYER-2020-230215

PATIENT

DRUGS (1)
  1. ALKA-SELTZER PLUS-D MULTI-SYMPTOM SINUS AND COLD [Suspect]
     Active Substance: ACETAMINOPHEN\CHLORPHENIRAMINE\DEXTROMETHORPHAN\PSEUDOEPHEDRINE
     Dosage: UNK

REACTIONS (1)
  - Angina pectoris [Unknown]
